FAERS Safety Report 22950678 (Version 2)
Quarter: 2023Q4

REPORT INFORMATION
  Report Type: Spontaneous
  Country: US (occurrence: US)
  Receive Date: 20230916
  Receipt Date: 20231011
  Transmission Date: 20240110
  Serious: No
  Sender: FDA-Public Use
  Company Number: US-AMGEN-USASP2023158529

PATIENT
  Age: 60 Year
  Sex: Female

DRUGS (4)
  1. NEULASTA [Suspect]
     Active Substance: PEGFILGRASTIM
     Indication: Neutropenia
     Dosage: UNK
     Route: 065
  2. NEULASTA [Suspect]
     Active Substance: PEGFILGRASTIM
     Indication: Malignant respiratory tract neoplasm
     Dosage: UNK
     Route: 065
  3. NEULASTA [Suspect]
     Active Substance: PEGFILGRASTIM
     Indication: Colon cancer
  4. NEULASTA [Suspect]
     Active Substance: PEGFILGRASTIM
     Indication: Gastrointestinal carcinoma

REACTIONS (2)
  - Accidental exposure to product [Unknown]
  - Intercepted product preparation error [Unknown]

NARRATIVE: CASE EVENT DATE: 20230824
